FAERS Safety Report 8759484 (Version 1)
Quarter: 2012Q4

REPORT INFORMATION
  Report Type: 
  Country: GB (occurrence: GB)
  Receive Date: 20120829
  Receipt Date: 20120829
  Transmission Date: 20130627
  Serious: Yes (Other)
  Sender: FDA-Public Use
  Company Number: GB-MERCK-1206USA05561

PATIENT

DRUGS (2)
  1. TIMOLOL MALEATE [Suspect]
     Route: 047
  2. XALATAN [Suspect]

REACTIONS (8)
  - Blindness [Recovering/Resolving]
  - Influenza like illness [Recovering/Resolving]
  - Tunnel vision [Recovering/Resolving]
  - Vision blurred [Recovering/Resolving]
  - Foreign body sensation in eyes [Unknown]
  - Eyelid oedema [Unknown]
  - Ocular hyperaemia [Unknown]
  - Intraocular pressure increased [Unknown]
